FAERS Safety Report 18842380 (Version 1)
Quarter: 2021Q1

REPORT INFORMATION
  Report Type: Report from Study
  Country: JP (occurrence: JP)
  Receive Date: 20210203
  Receipt Date: 20210203
  Transmission Date: 20210419
  Serious: Yes (Death, Life-Threatening)
  Sender: FDA-Public Use
  Company Number: JP-JNJFOC-20210141487

PATIENT
  Age: 58 Year
  Sex: Female
  Weight: 39 kg

DRUGS (12)
  1. SELEXIPAG [Suspect]
     Active Substance: SELEXIPAG
     Indication: PULMONARY ARTERIAL HYPERTENSION
     Route: 048
     Dates: start: 20180424, end: 20180514
  2. SELEXIPAG [Suspect]
     Active Substance: SELEXIPAG
     Route: 048
     Dates: start: 20180518, end: 20180614
  3. REVATIO [Concomitant]
     Active Substance: SILDENAFIL CITRATE
     Indication: PULMONARY ARTERIAL HYPERTENSION
     Dates: end: 20180829
  4. TRACLEER [Concomitant]
     Active Substance: BOSENTAN
     Indication: PULMONARY ARTERIAL HYPERTENSION
     Dates: end: 20180829
  5. DIARTRIN [Concomitant]
     Dates: end: 20180829
  6. BAYASPIRIN [Concomitant]
     Active Substance: ASPIRIN
     Dates: end: 20180829
  7. SELEXIPAG [Suspect]
     Active Substance: SELEXIPAG
     Route: 048
     Dates: start: 20180615, end: 20180713
  8. SPIRONOLACTONE. [Concomitant]
     Active Substance: SPIRONOLACTONE
     Dates: end: 20180809
  9. FUROSEMIDE. [Concomitant]
     Active Substance: FUROSEMIDE
     Dates: end: 20180829
  10. FEBURIC [Concomitant]
     Active Substance: FEBUXOSTAT
     Dates: end: 20180829
  11. TAKECAB [Concomitant]
     Active Substance: VONOPRAZAN FUMARATE
     Indication: PROPHYLAXIS
     Dates: end: 20180829
  12. SELEXIPAG [Suspect]
     Active Substance: SELEXIPAG
     Route: 048
     Dates: start: 20180515, end: 20180517

REACTIONS (2)
  - Pulmonary arterial hypertension [Fatal]
  - Cardiac failure [Not Recovered/Not Resolved]

NARRATIVE: CASE EVENT DATE: 20180713
